FAERS Safety Report 5038971-5 (Version None)
Quarter: 2006Q2

REPORT INFORMATION
  Report Type: 
  Country: None (occurrence: None)
  Receive Date: 20060628
  Receipt Date: 20060628
  Transmission Date: 20061013
  Serious: Yes (Hospitalization)
  Sender: FDA-Public Use
  Company Number: None

PATIENT
  Sex: Male
  Weight: 117 kg

DRUGS (8)
  1. ZOMETA [Suspect]
     Indication: PROSTATE CANCER
     Dosage: MG IV MONTHLY X6 DOSES
     Route: 042
     Dates: start: 20060330, end: 20060622
  2. LUPRON [Suspect]
     Indication: PROSTATE CANCER
     Dosage: 22.5 MG IM Q 3 MONTHS
     Route: 030
     Dates: start: 20051031, end: 20060622
  3. TUMS [Concomitant]
  4. CALCIUM SUPPLEMENT [Concomitant]
  5. TIAZAC [Concomitant]
  6. VITAMIN E [Concomitant]
  7. VITAMIN B6 [Concomitant]
  8. EFFEXOR [Concomitant]

REACTIONS (1)
  - MYOCARDIAL INFARCTION [None]
